FAERS Safety Report 5083169-8 (Version None)
Quarter: 2006Q3

REPORT INFORMATION
  Report Type: 
  Country: None (occurrence: None)
  Receive Date: 20060818
  Receipt Date: 20060329
  Transmission Date: 20061208
  Serious: Yes (Hospitalization, Other)
  Sender: FDA-Public Use
  Company Number: PHEH2006US04177

PATIENT
  Age: 74 Year
  Sex: Male
  Weight: 77.097 kg

DRUGS (4)
  1. EXJADE [Suspect]
     Indication: HAEMOCHROMATOSIS
     Dosage: 1500 MG, QD
     Dates: start: 20060222, end: 20060321
  2. METOPROLOL [Concomitant]
     Indication: HYPERTENSION
     Dosage: 25 MG, UNK
  3. ENALAPRIL MALEATE [Concomitant]
     Indication: HYPERTENSION
     Dosage: 5 MG, UNK
  4. INSULIN [Concomitant]
     Indication: DIABETES MELLITUS

REACTIONS (12)
  - ALANINE AMINOTRANSFERASE INCREASED [None]
  - ASPARTATE AMINOTRANSFERASE INCREASED [None]
  - BLOOD ALKALINE PHOSPHATASE INCREASED [None]
  - BLOOD BILIRUBIN INCREASED [None]
  - CARDIOMEGALY [None]
  - CHOLELITHIASIS [None]
  - CONFUSIONAL STATE [None]
  - FALL [None]
  - HEPATIC ENCEPHALOPATHY [None]
  - HEPATOCELLULAR DAMAGE [None]
  - JAUNDICE [None]
  - SYNCOPE [None]
